FAERS Safety Report 8951482 (Version 2)
Quarter: 2013Q2

REPORT INFORMATION
  Report Type: Spontaneous
  Country: US (occurrence: US)
  Receive Date: 20121204
  Receipt Date: 20130529
  Transmission Date: 20140414
  Serious: Yes (Hospitalization)
  Sender: FDA-Public Use
  Company Number: US-AMGEN-USASP2012063081

PATIENT
  Age: 51 Year
  Sex: Female
  Weight: 66.21 kg

DRUGS (1)
  1. ENBREL [Suspect]
     Indication: RHEUMATOID ARTHRITIS
     Dosage: 50 MG, QWK
     Dates: start: 20120913, end: 20120920

REACTIONS (3)
  - Uterine disorder [Recovered/Resolved]
  - Fatigue [Not Recovered/Not Resolved]
  - Menometrorrhagia [Not Recovered/Not Resolved]
